FAERS Safety Report 8140751-9 (Version None)
Quarter: 2012Q1

REPORT INFORMATION
  Report Type: 
  Country: None (occurrence: None)
  Receive Date: 20120216
  Receipt Date: 20120209
  Transmission Date: 20120608
  Serious: Yes (Hospitalization)
  Sender: FDA-Public Use
  Company Number: US-BAYER-2011-075249

PATIENT
  Age: 21 Year
  Sex: Female
  Weight: 81 kg

DRUGS (4)
  1. YASMIN [Suspect]
     Indication: CONTRACEPTION
     Dosage: UNK
     Dates: start: 20060101, end: 20100101
  2. ORTHO TRI-CYCLEN [Concomitant]
     Dosage: UNK
     Dates: start: 20100201, end: 20100212
  3. DARVOCET [Concomitant]
  4. YAZ [Suspect]
     Indication: CONTRACEPTION
     Dosage: UNK
     Route: 048
     Dates: start: 20060101, end: 20100101

REACTIONS (2)
  - INJURY [None]
  - PULMONARY EMBOLISM [None]
